FAERS Safety Report 12414150 (Version 1)
Quarter: 2016Q2

REPORT INFORMATION
  Report Type: Spontaneous
  Country: US (occurrence: US)
  Receive Date: 20160527
  Receipt Date: 20160527
  Transmission Date: 20160815
  Serious: No
  Sender: FDA-Public Use
  Company Number: US-MDT-ADR-2016-00407

PATIENT
  Age: 74 Year
  Sex: Female

DRUGS (6)
  1. LEXAPRO [Suspect]
     Active Substance: ESCITALOPRAM OXALATE
  2. LIORESAL [Suspect]
     Active Substance: BACLOFEN
     Dosage: 128.78MCG/DAY
     Route: 037
  3. KEPPRA [Suspect]
     Active Substance: LEVETIRACETAM
  4. SIMVASTATIN. [Suspect]
     Active Substance: SIMVASTATIN
  5. PLAVIX [Suspect]
     Active Substance: CLOPIDOGREL BISULFATE
  6. LIORESAL [Suspect]
     Active Substance: BACLOFEN
     Dosage: 183.77MCG/DAY
     Route: 037

REACTIONS (1)
  - Tremor [Unknown]

NARRATIVE: CASE EVENT DATE: 20160226
